FAERS Safety Report 23790554 (Version 2)
Quarter: 2024Q2

REPORT INFORMATION
  Report Type: Report from Study
  Country: CA (occurrence: CA)
  Receive Date: 20240427
  Receipt Date: 20240526
  Transmission Date: 20240716
  Serious: Yes (Hospitalization)
  Sender: FDA-Public Use
  Company Number: CA-002147023-NVSC2024CA048507

PATIENT
  Age: 67 Year
  Sex: Female
  Weight: 59 kg

DRUGS (1)
  1. LEQVIO [Suspect]
     Active Substance: INCLISIRAN SODIUM
     Indication: Arteriosclerosis
     Dosage: UNK
     Route: 058
     Dates: start: 20240209

REACTIONS (11)
  - Chest discomfort [Unknown]
  - Abdominal pain upper [Unknown]
  - Rhinorrhoea [Recovered/Resolved]
  - Dry mouth [Recovered/Resolved]
  - Mood swings [Unknown]
  - Rash [Unknown]
  - Insomnia [Unknown]
  - Cough [Recovered/Resolved]
  - Headache [Unknown]
  - Pain in extremity [Not Recovered/Not Resolved]
  - Chest pain [Unknown]

NARRATIVE: CASE EVENT DATE: 20240201
